FAERS Safety Report 23646118 (Version 1)
Quarter: 2024Q1

REPORT INFORMATION
  Report Type: Spontaneous
  Country: FR (occurrence: FR)
  Receive Date: 20240319
  Receipt Date: 20240319
  Transmission Date: 20240409
  Serious: Yes (Other)
  Sender: FDA-Public Use
  Company Number: None

PATIENT
  Age: 88 Year
  Sex: Male
  Weight: 56 kg

DRUGS (3)
  1. ENOXAPARIN SODIUM [Suspect]
     Active Substance: ENOXAPARIN SODIUM
     Indication: Thrombosis prophylaxis
     Dosage: ((MAMMAL/PIG/GUTTUM MUCOSA))
     Route: 048
     Dates: end: 20240208
  2. PAROXETINE [Suspect]
     Active Substance: PAROXETINE
     Indication: Behaviour disorder
     Dosage: PAROXETINE BASE
     Route: 048
     Dates: start: 20240126, end: 20240209
  3. KARDEGIC [Suspect]
     Active Substance: ASPIRIN DL-LYSINE
     Indication: Thrombosis prophylaxis
     Route: 058
     Dates: start: 20240207, end: 20240208

REACTIONS (2)
  - Haematuria [Recovered/Resolved]
  - Anaemia [Recovering/Resolving]

NARRATIVE: CASE EVENT DATE: 20240208
